FAERS Safety Report 5114180-6 (Version None)
Quarter: 2006Q3

REPORT INFORMATION
  Report Type: 
  Country: None (occurrence: None)
  Receive Date: 20060921
  Receipt Date: 20060911
  Transmission Date: 20061208
  Serious: Yes (Other)
  Sender: FDA-Public Use
  Company Number: 2006105576

PATIENT
  Age: 30 Year
  Sex: Female

DRUGS (1)
  1. ALDACTONE [Suspect]
     Indication: ACNE
     Dosage: 300 MG, ORAL
     Route: 048
     Dates: start: 20060801

REACTIONS (2)
  - BLOOD PRESSURE DECREASED [None]
  - PRESCRIBED OVERDOSE [None]
